FAERS Safety Report 19320331 (Version 2)
Quarter: 2024Q2

REPORT INFORMATION
  Report Type: Spontaneous
  Country: US (occurrence: US)
  Receive Date: 20210527
  Receipt Date: 20240429
  Transmission Date: 20240716
  Serious: Yes (Hospitalization, Other)
  Sender: FDA-Public Use
  Company Number: US-IGSA-BIG0014537

PATIENT
  Age: 56 Year
  Sex: Female

DRUGS (1)
  1. VISTASEAL [Suspect]
     Active Substance: FIBRINOGEN HUMAN\HUMAN THROMBIN
     Indication: Haemostasis
     Dosage: UNK
     Dates: start: 20210308, end: 20210427

REACTIONS (1)
  - Postoperative adhesion [Recovering/Resolving]

NARRATIVE: CASE EVENT DATE: 20210426
